FAERS Safety Report 9868676 (Version 2)
Quarter: 2014Q2

REPORT INFORMATION
  Report Type: Spontaneous
  Country: US (occurrence: US)
  Receive Date: 20140204
  Receipt Date: 20140416
  Transmission Date: 20141212
  Serious: Yes (Other)
  Sender: FDA-Public Use
  Company Number: US-ABBVIE-14P-163-1196648-00

PATIENT
  Age: 28 Year
  Sex: Female
  Weight: 88.53 kg

DRUGS (3)
  1. LUPRON DEPOT [Suspect]
     Indication: ENDOMETRIOSIS
     Dates: start: 199911, end: 200005
  2. CLOMID [Concomitant]
     Indication: INFERTILITY FEMALE
  3. LUPRON DEPOT-3 MONTH [Concomitant]
     Indication: ENDOMETRIOSIS
     Dates: start: 20140222, end: 20140222

REACTIONS (4)
  - Cervical incompetence [Unknown]
  - Premature delivery [Unknown]
  - Premature rupture of membranes [Recovered/Resolved]
  - Umbilical cord abnormality [Unknown]
